FAERS Safety Report 8301206-1 (Version None)
Quarter: 2012Q2

REPORT INFORMATION
  Report Type: 
  Country: None (occurrence: None)
  Receive Date: 20120420
  Receipt Date: 20120420
  Transmission Date: 20120825
  Serious: Yes (Hospitalization)
  Sender: FDA-Public Use
  Company Number: None

PATIENT
  Age: 33 Year
  Sex: Female
  Weight: 88.45 kg

DRUGS (1)
  1. VARENICLINE [Suspect]
     Indication: SMOKING CESSATION THERAPY
     Dosage: 0.5MG
     Route: 048
     Dates: start: 20120416, end: 20120417

REACTIONS (8)
  - MUSCLE FATIGUE [None]
  - DYSPNOEA [None]
  - HEART RATE IRREGULAR [None]
  - MOTOR DYSFUNCTION [None]
  - DISTURBANCE IN ATTENTION [None]
  - HEADACHE [None]
  - FEELING ABNORMAL [None]
  - DIZZINESS [None]
